FAERS Safety Report 10050529 (Version 1)
Quarter: 2014Q2

REPORT INFORMATION
  Report Type: Spontaneous
  Country: US (occurrence: US)
  Receive Date: 20140401
  Receipt Date: 20140401
  Transmission Date: 20141212
  Serious: No
  Sender: FDA-Public Use
  Company Number: US-ASTRAZENECA-2013SE78969

PATIENT
  Age: 67 Year
  Sex: Male
  Weight: 93 kg

DRUGS (8)
  1. NEXIUM [Suspect]
     Indication: GASTROOESOPHAGEAL REFLUX DISEASE
     Route: 048
     Dates: start: 2010
  2. FLONASE [Concomitant]
     Indication: SINUSITIS
     Dosage: 50MCG PRN
     Route: 045
  3. CLONAZEPAM [Concomitant]
     Indication: SLEEP DISORDER
     Dosage: 2MG QHS
     Route: 048
     Dates: start: 2009
  4. DOXYBUTIN [Concomitant]
     Indication: PROSTATIC DISORDER
     Route: 048
     Dates: start: 2010
  5. ATROVSTATIN [Concomitant]
     Indication: BLOOD CHOLESTEROL ABNORMAL
     Route: 048
     Dates: start: 2003
  6. COQ10 [Concomitant]
     Indication: CARDIAC DISORDER
     Route: 048
     Dates: start: 2011
  7. ADVAIR [Concomitant]
     Indication: LUNG DISORDER
     Dosage: 250/50 PRN
     Route: 055
  8. FISH OIL [Concomitant]
     Indication: ASTHENIA
     Dosage: UNKNOWN DAILY
     Route: 048
     Dates: start: 2012

REACTIONS (4)
  - Sinusitis [Unknown]
  - Dyspepsia [Unknown]
  - Gastrooesophageal reflux disease [Unknown]
  - Intentional product misuse [Unknown]
